FAERS Safety Report 4597959-9 (Version None)
Quarter: 2005Q1

REPORT INFORMATION
  Report Type: 
  Country: None (occurrence: None)
  Receive Date: 20050301
  Receipt Date: 20050228
  Transmission Date: 20050727
  Serious: Yes (Other)
  Sender: FDA-Public Use
  Company Number: 200415872BCC

PATIENT
  Age: 23 Year
  Sex: Female
  Weight: 63.9572 kg

DRUGS (2)
  1. MIDOL [Suspect]
     Indication: DYSMENORRHOEA
     Dosage: 1000/120/30 MG, ONCE, ORAL
     Route: 048
     Dates: start: 20041001
  2. CAFFEINE CITRATE [Suspect]

REACTIONS (9)
  - CHEST DISCOMFORT [None]
  - CHEST PAIN [None]
  - COMA [None]
  - DIZZINESS [None]
  - DYSPNOEA [None]
  - HYPERHIDROSIS [None]
  - HYPOAESTHESIA [None]
  - MIGRAINE [None]
  - PALPITATIONS [None]
